FAERS Safety Report 9708405 (Version 1)
Quarter: 2013Q4

REPORT INFORMATION
  Report Type: Spontaneous
  Country: US (occurrence: None)
  Receive Date: 20131121
  Receipt Date: 20131121
  Transmission Date: 20140711
  Serious: Yes (Other)
  Sender: FDA-Public Use
  Company Number: 2013AP009748

PATIENT
  Sex: Female
  Weight: 100.93 kg

DRUGS (7)
  1. ATORVASTATIN [Suspect]
     Indication: BLOOD CHOLESTEROL INCREASED
     Dates: start: 201309
  2. PRAVASTATIN SODIUM [Suspect]
  3. SIMVASTATIN [Suspect]
     Indication: BLOOD CHOLESTEROL INCREASED
  4. PLAVIX /01220701/ [Concomitant]
  5. AMLODIPINE [Concomitant]
  6. LISINOPRIL W/ HYDROCHLOROTHIAZIDE [Concomitant]
  7. METOPROLOL [Concomitant]

REACTIONS (5)
  - Abasia [None]
  - Muscle spasms [None]
  - Myalgia [None]
  - Weight increased [None]
  - Drug ineffective [None]
